FAERS Safety Report 6077070-0 (Version None)
Quarter: 2009Q1

REPORT INFORMATION
  Report Type: 
  Country: None (occurrence: None)
  Receive Date: 20090211
  Receipt Date: 20090211
  Transmission Date: 20090719
  Serious: No
  Sender: FDA-Public Use
  Company Number: None

PATIENT
  Sex: Male

DRUGS (1)
  1. FLUORIDE TOOTHPASTE [Suspect]

REACTIONS (2)
  - BURNING SENSATION [None]
  - STOMATITIS [None]
